FAERS Safety Report 4600293-1 (Version None)
Quarter: 2005Q1

REPORT INFORMATION
  Report Type: 
  Country: None (occurrence: None)
  Receive Date: 20050303
  Receipt Date: 20050215
  Transmission Date: 20050727
  Serious: Yes (Hospitalization)
  Sender: FDA-Public Use
  Company Number: 2005-DE-00631GD

PATIENT
  Age: 74 Year
  Sex: Male

DRUGS (4)
  1. PRAMIPEXOLE (PRAMIPEXOLE DIHYDROCHLORIDE) (PRAMIPEXOLE) [Suspect]
     Indication: TREMOR
     Dosage: 1.4 MG (NR)
  2. DOXAZOSIN (DOXAZOSIN) (NR) [Concomitant]
  3. AMIODARONE HCL [Concomitant]
  4. WARFARIN (WARFARIN) (NR) [Concomitant]

REACTIONS (20)
  - ANTI-PLATELET ANTIBODY POSITIVE [None]
  - C-REACTIVE PROTEIN INCREASED [None]
  - CREPITATIONS [None]
  - DRUG HYPERSENSITIVITY [None]
  - EOSINOPHILIA [None]
  - HAEMATURIA [None]
  - HENOCH-SCHONLEIN PURPURA [None]
  - INTERNATIONAL NORMALISED RATIO INCREASED [None]
  - LEUKOCYTOCLASTIC VASCULITIS [None]
  - LEUKOCYTOSIS [None]
  - NEPHRITIS [None]
  - NEUTROPHILIA [None]
  - OEDEMA PERIPHERAL [None]
  - PITTING OEDEMA [None]
  - PROTEINURIA [None]
  - RASH PRURITIC [None]
  - RED BLOOD CELL SEDIMENTATION RATE INCREASED [None]
  - THROMBOCYTOPENIA [None]
  - URINARY CASTS [None]
  - URINE PROTEIN/CREATININE RATIO INCREASED [None]
